FAERS Safety Report 9721428 (Version 4)
Quarter: 2014Q1

REPORT INFORMATION
  Report Type: Report from Study
  Country: BR (occurrence: BR)
  Receive Date: 20131129
  Receipt Date: 20140324
  Transmission Date: 20141002
  Serious: Yes (Other)
  Sender: FDA-Public Use
  Company Number: BR-ABBVIE-13P-020-1173157-00

PATIENT
  Age: 57 Year
  Sex: Female
  Weight: 51 kg

DRUGS (15)
  1. HUMIRA [Suspect]
     Indication: RHEUMATOID ARTHRITIS
     Route: 058
     Dates: start: 20120919, end: 201311
  2. HUMIRA [Suspect]
  3. OMEPRAZOLE [Concomitant]
     Indication: GASTRIC DISORDER
     Route: 048
     Dates: start: 20081121
  4. OMEPRAZOLE [Concomitant]
     Indication: PROPHYLAXIS
  5. METICORTEN [Concomitant]
     Indication: RHEUMATIC DISORDER
     Route: 048
     Dates: start: 2009
  6. CLORANA [Concomitant]
     Indication: HYPERTENSION
     Dosage: IN THE MORNING
     Route: 048
     Dates: start: 2011
  7. LOSARTAN [Concomitant]
     Indication: HYPERTENSION
     Route: 048
  8. PROPRANOLOL [Concomitant]
     Indication: BLOOD PRESSURE
     Dosage: MORNING AND NIGHT
     Route: 048
     Dates: start: 2012
  9. FLUOXETINE [Concomitant]
     Indication: DEPRESSION
     Dosage: AT LUNCH
     Route: 048
     Dates: start: 2009
  10. DIAZEPAM [Concomitant]
     Indication: SEDATIVE THERAPY
     Dosage: MORNING AND NIGHT
     Route: 048
  11. FIXA-CAL D (CALCIUM CARBONATE/VITAMIN D) [Concomitant]
     Indication: BONE DISORDER
     Dosage: MORNING AND NIGHT
     Route: 048
  12. FERROUS SULPHATE [Concomitant]
     Indication: ANAEMIA
     Dosage: MORNING AND NIGHT
  13. OSTEOFOR (ALENDRONATE SODIUM) [Concomitant]
     Indication: BONE DISORDER
     Dosage: IN FASTING
     Route: 048
  14. ENALAPRIL MALEATE [Concomitant]
     Indication: HYPERTENSION
     Dosage: MORNING AND NIGHT
  15. HARPAGOPHYTUM PROCUMBENS [Concomitant]
     Indication: PAIN
     Route: 048
     Dates: start: 20140312

REACTIONS (7)
  - Deafness [Recovered/Resolved]
  - Eyelid disorder [Not Recovered/Not Resolved]
  - Eyelid oedema [Not Recovered/Not Resolved]
  - Eyelids pruritus [Recovering/Resolving]
  - Eyelid pain [Recovering/Resolving]
  - Blepharitis [Recovering/Resolving]
  - Rash pustular [Recovering/Resolving]
